FAERS Safety Report 18612765 (Version 1)
Quarter: 2020Q4

REPORT INFORMATION
  Report Type: Spontaneous
  Country: US (occurrence: US)
  Receive Date: 20201214
  Receipt Date: 20201214
  Transmission Date: 20210114
  Serious: Yes (Other)
  Sender: FDA-Public Use
  Company Number: US-ELI_LILLY_AND_COMPANY-US202012002148

PATIENT
  Sex: Female

DRUGS (2)
  1. TALTZ [Suspect]
     Active Substance: IXEKIZUMAB
     Indication: PSORIASIS
     Dosage: 80 MG, UNKNOWN
     Route: 058
     Dates: start: 2018
  2. TALTZ [Suspect]
     Active Substance: IXEKIZUMAB
     Indication: PSORIATIC ARTHROPATHY
     Dosage: 80 MG, UNKNOWN, RESTARTED
     Route: 058
     Dates: start: 202011

REACTIONS (7)
  - Drug ineffective [Unknown]
  - Tendon disorder [Unknown]
  - Immunosuppression [Unknown]
  - Contusion [Unknown]
  - Pain [Unknown]
  - Joint range of motion decreased [Unknown]
  - Gait disturbance [Unknown]
